FAERS Safety Report 20700544 (Version 1)
Quarter: 2022Q2

REPORT INFORMATION
  Report Type: Spontaneous
  Country: US (occurrence: None)
  Receive Date: 20220411
  Receipt Date: 20220411
  Transmission Date: 20220721
  Serious: Yes (Hospitalization)
  Sender: FDA-Public Use
  Company Number: None

PATIENT
  Sex: Female

DRUGS (1)
  1. AMINOCAPROIC ACID [Suspect]
     Active Substance: AMINOCAPROIC ACID
     Indication: Von Willebrand^s disease
     Dosage: FREQUENCY : EVERY 6 HOURS;?
     Route: 048
     Dates: start: 202109

REACTIONS (3)
  - Mouth haemorrhage [None]
  - Abdominal discomfort [None]
  - Haemorrhage [None]
